FAERS Safety Report 8059148-5 (Version None)
Quarter: 2012Q1

REPORT INFORMATION
  Report Type: 
  Country: None (occurrence: None)
  Receive Date: 20120120
  Receipt Date: 20120109
  Transmission Date: 20120608
  Serious: Yes (Hospitalization)
  Sender: FDA-Public Use
  Company Number: FR-NOVOPROD-343007

PATIENT
  Age: 52 Year
  Sex: Male

DRUGS (7)
  1. GLUCOPHAGE [Concomitant]
  2. ENALAPRIL MALEATE AND HYDROCHLOROTHIAZIDE [Concomitant]
  3. GLICLAZIDE [Concomitant]
  4. ASPIRIN [Concomitant]
  5. VICTOZA [Suspect]
     Indication: TYPE 2 DIABETES MELLITUS
     Dosage: 0.6 MG, QD
     Route: 058
     Dates: start: 20111017, end: 20111121
  6. LAMICTAL [Concomitant]
  7. AMLODIPINE [Concomitant]

REACTIONS (1)
  - PANCREATITIS [None]
